FAERS Safety Report 4554547-8 (Version None)
Quarter: 2005Q1

REPORT INFORMATION
  Report Type: 
  Country: None (occurrence: None)
  Receive Date: 20050118
  Receipt Date: 20050111
  Transmission Date: 20050727
  Serious: Yes (Hospitalization)
  Sender: FDA-Public Use
  Company Number: PHBS2005JP00805

PATIENT

DRUGS (1)
  1. LOPRESSOR [Suspect]
     Route: 048

REACTIONS (1)
  - RHABDOMYOLYSIS [None]
